FAERS Safety Report 7267345-1 (Version None)
Quarter: 2011Q1

REPORT INFORMATION
  Report Type: 
  Country: None (occurrence: None)
  Receive Date: 20110201
  Receipt Date: 20100407
  Transmission Date: 20110831
  Serious: Yes (Other)
  Sender: FDA-Public Use
  Company Number: A0854185A

PATIENT

DRUGS (1)
  1. FONDAPARINUX SODIUM [Suspect]
     Route: 065

REACTIONS (1)
  - HAEMORRHAGIC DISORDER [None]
